FAERS Safety Report 20280124 (Version 1)
Quarter: 2021Q4

REPORT INFORMATION
  Report Type: Spontaneous
  Country: US (occurrence: None)
  Receive Date: 20211231
  Receipt Date: 20211231
  Transmission Date: 20220303
  Serious: Yes (Life-Threatening, Hospitalization)
  Sender: FDA-Public Use
  Company Number: None

PATIENT
  Age: 54 Year
  Sex: Male
  Weight: 108.8 kg

DRUGS (4)
  1. ENTRESTO [Suspect]
     Active Substance: SACUBITRIL\VALSARTAN
     Indication: Cardiac failure congestive
     Dosage: FREQUENCY : TWICE A DAY;?
     Route: 048
     Dates: start: 20210918, end: 20211003
  2. FUROSEMIDE [Concomitant]
     Active Substance: FUROSEMIDE
  3. metoprolol succ 50mg [Concomitant]
  4. SILDENAFIL [Concomitant]
     Active Substance: SILDENAFIL

REACTIONS (7)
  - Rash pruritic [None]
  - Rash [None]
  - Rash [None]
  - Oral mucosal blistering [None]
  - Oral mucosal blistering [None]
  - Haemorrhage [None]
  - Body temperature increased [None]

NARRATIVE: CASE EVENT DATE: 20211003
